FAERS Safety Report 6277034-8 (Version None)
Quarter: 2009Q3

REPORT INFORMATION
  Report Type: 
  Country: None (occurrence: None)
  Receive Date: 20090722
  Receipt Date: 20081201
  Transmission Date: 20100115
  Serious: No
  Sender: FDA-Public Use
  Company Number: US-BRISTOL-MYERS SQUIBB COMPANY-14424923

PATIENT
  Age: 73 Year
  Sex: Male
  Weight: 100 kg

DRUGS (1)
  1. COUMADIN [Suspect]
     Indication: ATRIAL FIBRILLATION
     Dosage: 1 DOSAGEFORM = 2.50MG FOR 4 DAYS AND 1.75MG FOR 3 DAYS.
     Dates: end: 20081126

REACTIONS (1)
  - EPISTAXIS [None]
